FAERS Safety Report 19239028 (Version 1)
Quarter: 2021Q2

REPORT INFORMATION
  Report Type: Spontaneous
  Country: US (occurrence: US)
  Receive Date: 20210510
  Receipt Date: 20210510
  Transmission Date: 20210717
  Serious: Yes (Death)
  Sender: FDA-Public Use
  Company Number: NVSC2021US104405

PATIENT

DRUGS (1)
  1. HYDROXYCHLOROQUINE [Suspect]
     Active Substance: HYDROXYCHLOROQUINE
     Indication: COVID-19
     Dosage: 400 MG, Q12H (2 DOSES ON DAY 1)
     Route: 065

REACTIONS (3)
  - Ventricular tachycardia [Fatal]
  - Product use in unapproved indication [Unknown]
  - Cardiac arrest [Fatal]
